FAERS Safety Report 8161967-1 (Version None)
Quarter: 2012Q1

REPORT INFORMATION
  Report Type: 
  Country: None (occurrence: None)
  Receive Date: 20120224
  Receipt Date: 20120210
  Transmission Date: 20120608
  Serious: Yes (Hospitalization)
  Sender: FDA-Public Use
  Company Number: US-RANBAXY-2012US-52688

PATIENT

DRUGS (5)
  1. EFFIENT [Concomitant]
     Indication: PRODUCT USED FOR UNKNOWN INDICATION
     Route: 065
  2. ATORVASTATIN [Suspect]
     Indication: CARDIAC DISORDER
     Dosage: 80 MG, QHS
     Route: 048
     Dates: start: 20120202, end: 20120206
  3. SYNTHROID [Concomitant]
     Indication: PRODUCT USED FOR UNKNOWN INDICATION
     Route: 065
  4. PROZAC [Concomitant]
     Indication: PRODUCT USED FOR UNKNOWN INDICATION
     Route: 065
  5. METOPROLOL TARTRATE [Concomitant]
     Indication: PRODUCT USED FOR UNKNOWN INDICATION
     Route: 065

REACTIONS (4)
  - FATIGUE [None]
  - BLOOD SODIUM DECREASED [None]
  - ASTHENIA [None]
  - BLOOD MAGNESIUM DECREASED [None]
